FAERS Safety Report 4373053-7 (Version None)
Quarter: 2004Q2

REPORT INFORMATION
  Report Type: 
  Country: None (occurrence: None)
  Receive Date: 20040526
  Receipt Date: 20040518
  Transmission Date: 20050107
  Serious: Yes (Other)
  Sender: FDA-Public Use
  Company Number: 200417911BWH

PATIENT
  Sex: Male

DRUGS (1)
  1. LEVITRA [Suspect]
     Dosage: ORAL
     Route: 048

REACTIONS (5)
  - ABASIA [None]
  - ERYTHEMA [None]
  - ORCHITIS NONINFECTIVE [None]
  - PENIS DISORDER [None]
  - SKIN DISCOLOURATION [None]
